FAERS Safety Report 18648678 (Version 1)
Quarter: 2020Q4

REPORT INFORMATION
  Report Type: Spontaneous
  Country: GB (occurrence: GB)
  Receive Date: 20201222
  Receipt Date: 20201222
  Transmission Date: 20210114
  Serious: Yes (Other)
  Sender: FDA-Public Use
  Company Number: GB-BAUSCH-BL-2020-037391

PATIENT
  Age: 21 Year
  Sex: Female

DRUGS (1)
  1. HYDROCORTISONE. [Suspect]
     Active Substance: HYDROCORTISONE
     Indication: ECZEMA
     Route: 061

REACTIONS (4)
  - Swelling [Unknown]
  - Hyperhidrosis [Unknown]
  - Steroid withdrawal syndrome [Not Recovered/Not Resolved]
  - Burning sensation [Unknown]
